FAERS Safety Report 7247206-4 (Version None)
Quarter: 2011Q1

REPORT INFORMATION
  Report Type: 
  Country: None (occurrence: None)
  Receive Date: 20110127
  Receipt Date: 20110119
  Transmission Date: 20110831
  Serious: Yes (Death, Other)
  Sender: FDA-Public Use
  Company Number: DE-GENZYME-CAMP-1001300

PATIENT
  Age: 42 Year
  Sex: Male

DRUGS (13)
  1. MELPHALAN [Suspect]
     Indication: STEM CELL TRANSPLANT
  2. FLUCONAZOLE [Concomitant]
     Indication: INFECTION PROPHYLAXIS
     Dosage: UNK
     Route: 065
  3. FLUDARA [Suspect]
     Indication: BONE MARROW CONDITIONING REGIMEN
     Dosage: UNK
     Route: 065
  4. CARMUSTINE [Suspect]
     Indication: BONE MARROW CONDITIONING REGIMEN
     Dosage: UNK
     Route: 065
  5. CYCLOSPORINE [Concomitant]
     Indication: PROPHYLAXIS AGAINST GRAFT VERSUS HOST DISEASE
     Dosage: UNK
     Route: 065
  6. MYCOPHENOLATE MOFETIL [Concomitant]
     Indication: PROPHYLAXIS AGAINST GRAFT VERSUS HOST DISEASE
     Dosage: 15 MG/KG, BID
     Route: 065
  7. CAMPATH [Suspect]
     Indication: ACUTE GRAFT VERSUS HOST DISEASE
     Dosage: 3 - 13 MG/KG, QD, 1 TO 2 DAYS INITIALLY
     Route: 042
  8. MELPHALAN [Suspect]
     Indication: BONE MARROW CONDITIONING REGIMEN
     Dosage: UNK
     Route: 065
  9. TRIMETHOPRIM + SULFAMETHOXAZOLE [Concomitant]
     Indication: INFECTION PROPHYLAXIS
     Dosage: UNK
     Route: 065
  10. ACYCLOVIR [Concomitant]
     Indication: INFECTION PROPHYLAXIS
     Dosage: UNK
     Route: 065
  11. CAMPATH [Suspect]
     Dosage: 5 - 10 MG ONCE EVERY 2 TO 3 WEEKS
     Route: 042
  12. FLUDARA [Suspect]
     Indication: STEM CELL TRANSPLANT
  13. CARMUSTINE [Suspect]
     Indication: STEM CELL TRANSPLANT

REACTIONS (9)
  - ORGANISING PNEUMONIA [None]
  - CYTOMEGALOVIRUS INFECTION [None]
  - ACUTE RESPIRATORY DISTRESS SYNDROME [None]
  - CHRONIC GRAFT VERSUS HOST DISEASE [None]
  - SYSTEMIC INFLAMMATORY RESPONSE SYNDROME [None]
  - DEATH [None]
  - ACUTE GRAFT VERSUS HOST DISEASE [None]
  - ERYTHEMA INFECTIOSUM [None]
  - PNEUMONIA RESPIRATORY SYNCYTIAL VIRAL [None]
